FAERS Safety Report 18752969 (Version 1)
Quarter: 2021Q1

REPORT INFORMATION
  Report Type: Spontaneous
  Country: FR (occurrence: FR)
  Receive Date: 20210118
  Receipt Date: 20210118
  Transmission Date: 20210419
  Serious: Yes (Hospitalization, Other)
  Sender: FDA-Public Use
  Company Number: FR-TAKEDA-2021TUS002310

PATIENT
  Sex: Male

DRUGS (2)
  1. ICLUSIG [Suspect]
     Active Substance: PONATINIB
     Dosage: 15 MILLIGRAM, QD
     Route: 048
     Dates: start: 20201111, end: 20201217
  2. ICLUSIG [Suspect]
     Active Substance: PONATINIB
     Indication: ACUTE LYMPHOCYTIC LEUKAEMIA
     Dosage: 15 MILLIGRAM, QD
     Route: 048

REACTIONS (9)
  - Thrombophlebitis superficial [Unknown]
  - Acute lymphocytic leukaemia [Unknown]
  - General physical health deterioration [Unknown]
  - Pain [Unknown]
  - Disease progression [Unknown]
  - Abdominal pain [Unknown]
  - Vomiting [Unknown]
  - Thrombocytopenia [Unknown]
  - Nausea [Unknown]

NARRATIVE: CASE EVENT DATE: 202010
